FAERS Safety Report 16784423 (Version 2)
Quarter: 2019Q4

REPORT INFORMATION
  Report Type: Spontaneous
  Country: CA (occurrence: CA)
  Receive Date: 20190909
  Receipt Date: 20191017
  Transmission Date: 20200122
  Serious: Yes (Other)
  Sender: FDA-Public Use
  Company Number: CA-REGENERON PHARMACEUTICALS, INC.-2019-52214

PATIENT

DRUGS (9)
  1. EYLEA [Suspect]
     Active Substance: AFLIBERCEPT
     Dosage: ONCE, OD
     Dates: start: 20190724, end: 20190724
  2. EYLEA [Suspect]
     Active Substance: AFLIBERCEPT
     Dosage: ONCE, OU
     Dates: start: 20190525, end: 20190525
  3. EYLEA [Suspect]
     Active Substance: AFLIBERCEPT
     Dosage: ONCE, OS
     Dates: start: 20190208, end: 20190208
  4. EYLEA [Suspect]
     Active Substance: AFLIBERCEPT
     Dosage: ONCE, OU
     Dates: start: 20190320, end: 20190320
  5. EYLEA [Suspect]
     Active Substance: AFLIBERCEPT
     Dosage: 2 MG, ONCE, OD
     Route: 031
     Dates: start: 20190828, end: 20190828
  6. EYLEA [Suspect]
     Active Substance: AFLIBERCEPT
     Dosage: ONCE, OS
     Dates: start: 20190103, end: 20190103
  7. EYLEA [Suspect]
     Active Substance: AFLIBERCEPT
     Dosage: ONCE, OD
     Dates: start: 20190425, end: 20190425
  8. EYLEA [Suspect]
     Active Substance: AFLIBERCEPT
     Indication: NEOVASCULAR AGE-RELATED MACULAR DEGENERATION
     Dosage: UNK UNK, TOTAL
     Dates: start: 20181129, end: 20181129
  9. EYLEA [Suspect]
     Active Substance: AFLIBERCEPT
     Dosage: ONCE, OD
     Dates: start: 20190626, end: 20190626

REACTIONS (4)
  - Blindness unilateral [Unknown]
  - Eye haemorrhage [Unknown]
  - Blindness unilateral [Unknown]
  - Vision blurred [Unknown]

NARRATIVE: CASE EVENT DATE: 20190529
